FAERS Safety Report 10264585 (Version 4)
Quarter: 2014Q3

REPORT INFORMATION
  Report Type: Spontaneous
  Country: PL (occurrence: PL)
  Receive Date: 20140627
  Receipt Date: 20140904
  Transmission Date: 20150326
  Serious: Yes (Other)
  Sender: FDA-Public Use
  Company Number: PHHY2014PL075474

PATIENT
  Age: 42 Year
  Sex: Female
  Weight: 85 kg

DRUGS (2)
  1. EXTAVIA [Suspect]
     Active Substance: INTERFERON BETA-1B
     Indication: MULTIPLE SCLEROSIS
     Dosage: 250 UG EVERY TWO DAYS
     Route: 058
     Dates: start: 20140422
  2. EXTAVIA [Suspect]
     Active Substance: INTERFERON BETA-1B
     Dosage: DOSE WAS DECREASED TO 3/4 REGULAR DOSE
     Route: 058

REACTIONS (4)
  - Iron deficiency anaemia [Unknown]
  - Leukopenia [Unknown]
  - Abdominal wall abscess [Recovering/Resolving]
  - Injection site abscess [Recovering/Resolving]

NARRATIVE: CASE EVENT DATE: 20140526
